FAERS Safety Report 9119315 (Version 1)
Quarter: 2013Q1

REPORT INFORMATION
  Report Type: Spontaneous
  Country: US (occurrence: US)
  Receive Date: 20130207
  Receipt Date: 20130207
  Transmission Date: 20140127
  Serious: Yes (Other)
  Sender: FDA-Public Use
  Company Number: US-PFIZER INC-2013049408

PATIENT
  Age: 43 Year
  Sex: Male
  Weight: 61.22 kg

DRUGS (4)
  1. EFFEXOR [Suspect]
     Indication: ANXIETY
     Dosage: 37.5 MG DAILY
     Dates: start: 20130116, end: 201302
  2. EFFEXOR [Suspect]
     Indication: DEPRESSION
  3. EFFEXOR [Suspect]
     Indication: ATTENTION DEFICIT/HYPERACTIVITY DISORDER
  4. CLARITIN [Concomitant]
     Dosage: UNK

REACTIONS (4)
  - Agitation [Unknown]
  - Depression [Unknown]
  - Decreased appetite [Unknown]
  - Thinking abnormal [Unknown]
